FAERS Safety Report 6245432-4 (Version None)
Quarter: 2009Q2

REPORT INFORMATION
  Report Type: 
  Country: None (occurrence: None)
  Receive Date: 20090619
  Receipt Date: 20090311
  Transmission Date: 20091009
  Serious: No
  Sender: FDA-Public Use
  Company Number: ALL1-2009-00661

PATIENT
  Age: 6 Year
  Sex: Male
  Weight: 24.9 kg

DRUGS (4)
  1. VYVANSE [Suspect]
     Indication: ATTENTION DEFICIT/HYPERACTIVITY DISORDER
     Dosage: 30 MG, 2X/DAY:BID, ORAL
     Route: 048
     Dates: start: 20090101
  2. ABILIFY [Suspect]
     Indication: BIPOLAR DISORDER
     Dosage: 10 MG, 2X/DAY:BID, ORAL
     Route: 048
     Dates: start: 20090101
  3. ZYPREXA [Suspect]
     Dosage: 5 MG, 1X/DAY: QD, ORAL
     Route: 048
     Dates: start: 20090101
  4. LITHIUM CARBONATE [Concomitant]

REACTIONS (4)
  - AGGRESSION [None]
  - ANGER [None]
  - CONDITION AGGRAVATED [None]
  - IMPULSIVE BEHAVIOUR [None]
